FAERS Safety Report 7027832-8 (Version None)
Quarter: 2010Q4

REPORT INFORMATION
  Report Type: 
  Country: None (occurrence: None)
  Receive Date: 20101005
  Receipt Date: 20100927
  Transmission Date: 20110411
  Serious: Yes (Other)
  Sender: FDA-Public Use
  Company Number: FR-BIOGENIDEC-2010BI030394

PATIENT
  Age: 31 Year
  Sex: Female

DRUGS (3)
  1. TYSABRI [Suspect]
     Indication: MULTIPLE SCLEROSIS
     Route: 042
     Dates: start: 20090801, end: 20100716
  2. CONTRACEPTIVE PILL [Concomitant]
     Indication: CONTRACEPTION
  3. AMITRIPTYLINE HCL [Concomitant]
     Indication: NEURALGIA

REACTIONS (1)
  - ABORTION SPONTANEOUS [None]
